FAERS Safety Report 9867056 (Version 2)
Quarter: 2014Q1

REPORT INFORMATION
  Report Type: Spontaneous
  Country: JP (occurrence: JP)
  Receive Date: 20140204
  Receipt Date: 20140207
  Transmission Date: 20141002
  Serious: No
  Sender: FDA-Public Use
  Company Number: JP-AMGEN-JPNSP2014007392

PATIENT
  Age: 59 Year
  Sex: Male
  Weight: 58 kg

DRUGS (8)
  1. ENBREL [Suspect]
     Indication: RHEUMATOID ARTHRITIS
     Dosage: 25 MG, WEEKLY
     Route: 058
     Dates: start: 20131122, end: 20131213
  2. ENBREL [Suspect]
     Dosage: 25 MG, 2 TIMES/WK
     Route: 058
  3. CARERAM [Suspect]
     Indication: RHEUMATOID ARTHRITIS
     Dosage: 25 MG, TWICE DAILY
     Route: 048
     Dates: start: 201212, end: 20131206
  4. PREDONINE                          /00016201/ [Concomitant]
     Indication: RHEUMATOID ARTHRITIS
     Dosage: 2 MG, ONCE A DAY
     Route: 048
     Dates: start: 20130205, end: 20131220
  5. METHYCOBAL [Concomitant]
     Dosage: 500 UG, THRICE A DAY
     Route: 048
     Dates: end: 20131220
  6. PROGRAF [Concomitant]
     Indication: RHEUMATOID ARTHRITIS
     Dosage: 1 MG, ONCE A DAY
     Route: 048
     Dates: start: 20130319
  7. NEXIUM                             /01479303/ [Concomitant]
     Dosage: 20 UG, ONCE A DAY
     Route: 048
     Dates: start: 20130402
  8. BONALON [Concomitant]
     Dosage: 35 MG, WEEKLY
     Route: 048
     Dates: start: 20130723, end: 20131220

REACTIONS (1)
  - Hepatic function abnormal [Not Recovered/Not Resolved]
